FAERS Safety Report 17201547 (Version 1)
Quarter: 2020Q1

REPORT INFORMATION
  Report Type: Spontaneous
  Country: US (occurrence: US)
  Receive Date: 20191221
  Receipt Date: 20191221
  Transmission Date: 20200409
  Serious: Yes (Other)
  Sender: FDA-Public Use
  Company Number: None

PATIENT
  Age: 32 Year
  Sex: Female
  Weight: 74.25 kg

DRUGS (1)
  1. HAIR REGROWTH SERUM (HEMP) [Suspect]
     Active Substance: HEMP
     Indication: ALOPECIA
     Route: 061
     Dates: start: 20191219, end: 20191219

REACTIONS (5)
  - Vision blurred [None]
  - Lacrimation increased [None]
  - Eye irritation [None]
  - Eye swelling [None]
  - Product formulation issue [None]

NARRATIVE: CASE EVENT DATE: 20191219
